FAERS Safety Report 10285300 (Version 1)
Quarter: 2014Q3

REPORT INFORMATION
  Report Type: Spontaneous
  Country: CA (occurrence: CA)
  Receive Date: 20140708
  Receipt Date: 20140708
  Transmission Date: 20150326
  Serious: Yes (Other)
  Sender: FDA-Public Use
  Company Number: CA-009507513-1407CAN002422

PATIENT
  Sex: Male

DRUGS (1)
  1. TEMODAL [Suspect]
     Active Substance: TEMOZOLOMIDE
     Dosage: THE PATIENT RECEIVED 3 CYCKES ALL TOGETHER
     Route: 048
     Dates: end: 2014

REACTIONS (2)
  - Neoplasm progression [Unknown]
  - Pain [Unknown]
